FAERS Safety Report 8556866-7 (Version None)
Quarter: 2012Q2

REPORT INFORMATION
  Report Type: 
  Country: None (occurrence: None)
  Receive Date: 20120418
  Receipt Date: 20100817
  Transmission Date: 20120825
  Serious: Yes (Other)
  Sender: FDA-Public Use
  Company Number: PHEH2010US03514

PATIENT
  Sex: Female

DRUGS (2)
  1. MEDROXYPROGESTERONE [Suspect]
  2. ESTRADERM [Suspect]
     Dosage: TRANSDERMAL
     Route: 062

REACTIONS (2)
  - BREAST CANCER [None]
  - BREAST LUMP REMOVAL [None]
